FAERS Safety Report 7343320-3 (Version None)
Quarter: 2011Q1

REPORT INFORMATION
  Report Type: 
  Country: None (occurrence: None)
  Receive Date: 20110301
  Receipt Date: 20110216
  Transmission Date: 20110831
  Serious: Yes (Life-Threatening, Hospitalization)
  Sender: FDA-Public Use
  Company Number: MC201100064

PATIENT
  Age: 62 Year
  Sex: Male
  Weight: 100 kg

DRUGS (11)
  1. ANGIOMAX [Suspect]
  2. BETA BLOCKING AGENTS [Concomitant]
  3. ANALGESICS [Concomitant]
  4. STATIN [Concomitant]
  5. ANTIBIOTICS [Concomitant]
  6. ACE INHIBITOR NOS [Concomitant]
  7. PROTON PUMP INHIBITORS [Concomitant]
  8. ASPEGIC 1000 [Suspect]
     Indication: ACUTE MYOCARDIAL INFARCTION
     Dosage: 450 MG, BOLUS; INTRAVENOUS
     Route: 042
     Dates: start: 20100804, end: 20100804
  9. FUROSEMIDE ALPHARMA (FUROSEMIDE) [Concomitant]
  10. HEPARIN [Suspect]
     Indication: ACUTE MYOCARDIAL INFARCTION
     Dosage: 5000 IU, BOLUS, INTRAVENOUS
     Route: 042
     Dates: start: 20100804, end: 20100804
  11. CLOPIDEGREL [Suspect]
     Indication: ACUTE MYOCARDIAL INFARCTION
     Dosage: 600 MG, SINGLE, ORAL
     Route: 048
     Dates: start: 20100804, end: 20100804

REACTIONS (11)
  - PLATELET COUNT INCREASED [None]
  - BLOOD SODIUM DECREASED [None]
  - PULMONARY OEDEMA [None]
  - BLOOD GLUCOSE INCREASED [None]
  - PERICARDIAL EFFUSION [None]
  - WHITE BLOOD CELL COUNT INCREASED [None]
  - HAEMATOCRIT DECREASED [None]
  - BLOOD LACTATE DEHYDROGENASE INCREASED [None]
  - BLOOD CHOLESTEROL INCREASED [None]
  - HAEMOGLOBIN DECREASED [None]
  - BLOOD CREATINE PHOSPHOKINASE INCREASED [None]
